FAERS Safety Report 9479036 (Version 2)
Quarter: 2013Q3

REPORT INFORMATION
  Report Type: Spontaneous
  Country: DE (occurrence: DE)
  Receive Date: 20130827
  Receipt Date: 20130903
  Transmission Date: 20140515
  Serious: No
  Sender: FDA-Public Use
  Company Number: DE-UCBSA-096084

PATIENT
  Age: 49 Year
  Sex: Female

DRUGS (2)
  1. NEUPRO [Suspect]
     Indication: RESTLESS LEGS SYNDROME
     Dosage: PATCH, FREQUENCY: 1
     Dates: start: 20130122, end: 20130816
  2. L-THYROXIN [Concomitant]
     Indication: HYPOTHYROIDISM
     Route: 048

REACTIONS (2)
  - Application site hypersensitivity [Recovering/Resolving]
  - Blister [Unknown]
